FAERS Safety Report 8433133-3 (Version None)
Quarter: 2012Q2

REPORT INFORMATION
  Report Type: 
  Country: None (occurrence: None)
  Receive Date: 20120613
  Receipt Date: 20120606
  Transmission Date: 20120825
  Serious: Yes (Hospitalization)
  Sender: FDA-Public Use
  Company Number: CA-GLAXOSMITHKLINE-A0980368A

PATIENT
  Sex: Male
  Weight: 79.5 kg

DRUGS (12)
  1. METOPROLOL TARTRATE [Concomitant]
     Route: 048
  2. ASPIRIN [Concomitant]
     Route: 048
  3. FLUOROURACIL [Concomitant]
     Route: 061
  4. PRADAXA [Concomitant]
     Route: 048
  5. GSK2110183 [Suspect]
     Indication: CHRONIC LYMPHOCYTIC LEUKAEMIA
     Dosage: 125MG PER DAY
     Route: 048
     Dates: start: 20120424
  6. RABEPRAZOLE SODIUM [Concomitant]
     Route: 048
  7. CARDIZEM [Concomitant]
     Route: 048
  8. BENADRYL [Concomitant]
     Route: 042
  9. LIPITOR [Concomitant]
     Route: 048
  10. SERTRALINE HYDROCHLORIDE [Concomitant]
     Route: 048
  11. PRBC [Concomitant]
     Route: 042
  12. OFATUMUMAB [Suspect]
     Indication: CHRONIC LYMPHOCYTIC LEUKAEMIA
     Dosage: 2000MG WEEKLY
     Route: 042
     Dates: start: 20120504

REACTIONS (1)
  - ATRIAL FIBRILLATION [None]
